FAERS Safety Report 14435999 (Version 1)
Quarter: 2018Q1

REPORT INFORMATION
  Report Type: Spontaneous
  Country: US (occurrence: US)
  Receive Date: 20180125
  Receipt Date: 20180125
  Transmission Date: 20180509
  Serious: No
  Sender: FDA-Public Use
  Company Number: US-UNITED THERAPEUTICS-UNT-2017-008561

PATIENT
  Age: 52 Year
  Sex: Female
  Weight: 100.68 kg

DRUGS (3)
  1. REMODULIN [Suspect]
     Active Substance: TREPROSTINIL
     Indication: PULMONARY HYPERTENSION
     Dosage: 0.04  ?G/KG, CONTINUING
     Route: 058
     Dates: start: 20161222
  2. SILDENAFIL CITRATE. [Concomitant]
     Active Substance: SILDENAFIL CITRATE
     Indication: PRODUCT USED FOR UNKNOWN INDICATION
  3. REMODULIN [Suspect]
     Active Substance: TREPROSTINIL
     Dosage: UNK
     Route: 058

REACTIONS (8)
  - Hypoaesthesia [Unknown]
  - Headache [Unknown]
  - Pain in extremity [Recovered/Resolved]
  - Infusion site swelling [Recovered/Resolved]
  - Device use issue [Unknown]
  - Migraine [Unknown]
  - Infusion site haemorrhage [Unknown]
  - Infusion site injury [Unknown]

NARRATIVE: CASE EVENT DATE: 20170524
